FAERS Safety Report 6633210-3 (Version None)
Quarter: 2010Q1

REPORT INFORMATION
  Report Type: 
  Country: None (occurrence: None)
  Receive Date: 20100312
  Receipt Date: 20100310
  Transmission Date: 20100710
  Serious: Yes (Life-Threatening, Hospitalization)
  Sender: FDA-Public Use
  Company Number: PHHY2010IL10196

PATIENT
  Age: 43 Year
  Sex: Male
  Weight: 70 kg

DRUGS (2)
  1. EXJADE [Suspect]
     Indication: THALASSAEMIA
     Dosage: 1500 MG DAILY
     Route: 048
     Dates: start: 20070101
  2. EXJADE [Suspect]
     Dosage: 1500 MG DAILY
     Route: 048

REACTIONS (3)
  - BILIRUBIN CONJUGATED INCREASED [None]
  - HAEMOLYSIS [None]
  - SPLENECTOMY [None]
